FAERS Safety Report 8163089 (Version 3)
Quarter: 2012Q4

REPORT INFORMATION
  Report Type: Spontaneous
  Country: US (occurrence: US)
  Receive Date: 20110930
  Receipt Date: 20121218
  Transmission Date: 20130627
  Serious: Yes (Other)
  Sender: FDA-Public Use
  Company Number: PHEH2011US05281

PATIENT
  Age: 42 Year
  Sex: Female
  Weight: 82.01 kg

DRUGS (1)
  1. ZOMETA (ZOLEDRONATE) SOLUTION FOR INJECTION [Suspect]
     Indication: METASTASES TO BONE
     Dosage: 4 mg, every 4 weeks
     Route: 042
     Dates: start: 20100713, end: 20110613

REACTIONS (5)
  - Osteonecrosis of jaw [Not Recovered/Not Resolved]
  - Pain in jaw [Not Recovered/Not Resolved]
  - Actinomycosis [Unknown]
  - Osteomyelitis [Unknown]
  - Exposed bone in jaw [Unknown]
